FAERS Safety Report 8518307-5 (Version None)
Quarter: 2012Q3

REPORT INFORMATION
  Report Type: 
  Country: None (occurrence: None)
  Receive Date: 20120718
  Receipt Date: 20120206
  Transmission Date: 20120928
  Serious: Yes (Hospitalization)
  Sender: FDA-Public Use
  Company Number: US-BRISTOL-MYERS SQUIBB COMPANY-16357725

PATIENT
  Age: 73 Year
  Sex: Female

DRUGS (2)
  1. LETAIRIS [Suspect]
     Indication: PULMONARY HYPERTENSION
     Dosage: LETAIRIS TABS
     Route: 048
     Dates: start: 20090701
  2. COUMADIN [Suspect]
     Dosage: REG 1

REACTIONS (1)
  - LOWER GASTROINTESTINAL HAEMORRHAGE [None]
